FAERS Safety Report 7585074-1 (Version None)
Quarter: 2011Q2

REPORT INFORMATION
  Report Type: 
  Country: None (occurrence: None)
  Receive Date: 20110630
  Receipt Date: 20110624
  Transmission Date: 20111010
  Serious: Yes (Hospitalization)
  Sender: FDA-Public Use
  Company Number: AT-CEPHALON-2011003392

PATIENT
  Sex: Female
  Weight: 62 kg

DRUGS (2)
  1. BENDAMUSTINE HCL [Suspect]
     Route: 042
     Dates: start: 20110621
  2. RITUXIMAB [Suspect]
     Route: 042
     Dates: start: 20110620

REACTIONS (1)
  - SWOLLEN TONGUE [None]
